FAERS Safety Report 9187272 (Version 1)
Quarter: 2013Q1

REPORT INFORMATION
  Report Type: Spontaneous
  Country: CO (occurrence: CO)
  Receive Date: 20130325
  Receipt Date: 20130325
  Transmission Date: 20140127
  Serious: Yes (Other)
  Sender: FDA-Public Use
  Company Number: CO-PFIZER INC-2013094466

PATIENT
  Age: 4 Year
  Sex: Female

DRUGS (2)
  1. GENOTROPIN [Suspect]
     Indication: BODY HEIGHT BELOW NORMAL
     Dosage: 1.2 MG, 1X/DAY
     Route: 058
     Dates: start: 2000
  2. GENOTROPIN [Suspect]
     Indication: OBESITY

REACTIONS (2)
  - Major depression [Not Recovered/Not Resolved]
  - Off label use [Unknown]
